FAERS Safety Report 15759023 (Version 1)
Quarter: 2018Q4

REPORT INFORMATION
  Report Type: Spontaneous
  Country: US (occurrence: US)
  Receive Date: 20181226
  Receipt Date: 20181226
  Transmission Date: 20190205
  Serious: Yes (Disabling)
  Sender: FDA-Public Use
  Company Number: US-009507513-1812USA010871

PATIENT
  Sex: Female
  Weight: 69.84 kg

DRUGS (4)
  1. ADVAIR HFA [Concomitant]
     Active Substance: FLUTICASONE PROPIONATE\SALMETEROL XINAFOATE
  2. ALBUTEROL. [Concomitant]
     Active Substance: ALBUTEROL
  3. NEXPLANON [Suspect]
     Active Substance: ETONOGESTREL
     Indication: CONTRACEPTION
     Dosage: UNK
     Route: 059
     Dates: start: 20181023, end: 20181220
  4. SINGULAIR [Concomitant]
     Active Substance: MONTELUKAST SODIUM

REACTIONS (2)
  - Rash [Not Recovered/Not Resolved]
  - Swelling face [Not Recovered/Not Resolved]

NARRATIVE: CASE EVENT DATE: 2018
